FAERS Safety Report 7220136-X (Version None)
Quarter: 2011Q1

REPORT INFORMATION
  Report Type: 
  Country: None (occurrence: None)
  Receive Date: 20110111
  Receipt Date: 20110104
  Transmission Date: 20110831
  Serious: Yes (Hospitalization)
  Sender: FDA-Public Use
  Company Number: NL-JNJFOC-20101207835

PATIENT
  Sex: Male
  Weight: 72 kg

DRUGS (10)
  1. FOLIC ACID [Concomitant]
  2. FUROSEMIDE [Concomitant]
     Indication: OEDEMA
  3. INFLIXIMAB, RECOMBINANT [Suspect]
     Route: 042
  4. INFLIXIMAB, RECOMBINANT [Suspect]
     Indication: RHEUMATOID ARTHRITIS
     Route: 042
  5. SIMVASTATIN [Concomitant]
     Indication: PROPHYLAXIS
  6. METHOTREXATE [Suspect]
     Indication: RHEUMATOID ARTHRITIS
  7. ARTHROTEC [Concomitant]
     Indication: PAIN
  8. RETINOL [Concomitant]
  9. HYDROXYCARBAMIDE [Concomitant]
     Indication: ANAEMIA
  10. NEXIUM [Concomitant]
     Indication: GASTROINTESTINAL DISORDER THERAPY

REACTIONS (4)
  - ATRIAL FIBRILLATION [None]
  - LEFT VENTRICULAR HYPERTROPHY [None]
  - DYSPNOEA [None]
  - LEFT VENTRICULAR DYSFUNCTION [None]
